FAERS Safety Report 19390270 (Version 1)
Quarter: 2021Q2

REPORT INFORMATION
  Report Type: Spontaneous
  Country: US (occurrence: US)
  Receive Date: 20210608
  Receipt Date: 20210608
  Transmission Date: 20210717
  Serious: Yes (Hospitalization)
  Sender: FDA-Public Use
  Company Number: US-UNICHEM PHARMACEUTICALS (USA) INC-UCM202105-000502

PATIENT
  Age: 18 Year
  Sex: Female

DRUGS (4)
  1. FUROSEMIDE. [Suspect]
     Active Substance: FUROSEMIDE
     Indication: OVERDOSE
     Dosage: 30 TABLETS
  2. CARVEDILOL. [Suspect]
     Active Substance: CARVEDILOL
     Indication: OVERDOSE
     Dosage: 30 TABLETS
  3. AMLODIPINE [Suspect]
     Active Substance: AMLODIPINE BESYLATE
     Indication: OVERDOSE
     Dosage: 300 MG
  4. HYDROCHLOROTHIAZIDE. [Suspect]
     Active Substance: HYDROCHLOROTHIAZIDE
     Indication: OVERDOSE
     Dosage: 30 TABLETS OF 25 MG

REACTIONS (4)
  - Hypotension [Recovering/Resolving]
  - Shock [Recovering/Resolving]
  - Tachycardia [Recovering/Resolving]
  - Overdose [Unknown]
